FAERS Safety Report 7320552-1 (Version None)
Quarter: 2011Q1

REPORT INFORMATION
  Report Type: 
  Country: None (occurrence: None)
  Receive Date: 20110228
  Receipt Date: 20110217
  Transmission Date: 20110831
  Serious: No
  Sender: FDA-Public Use
  Company Number: KR-JNJFOC-20110206311

PATIENT
  Age: 54 Year
  Sex: Male

DRUGS (3)
  1. ANALGESICS [Concomitant]
     Indication: PAIN MANAGEMENT
     Route: 048
  2. FENTANYL [Suspect]
     Indication: PAIN MANAGEMENT
     Route: 062
  3. UNKNOWN MEDICATION [Concomitant]
     Indication: PAIN MANAGEMENT
     Route: 048

REACTIONS (7)
  - VOMITING [None]
  - DRUG PRESCRIBING ERROR [None]
  - PAIN [None]
  - DRUG ADMINISTRATION ERROR [None]
  - INAPPROPRIATE SCHEDULE OF DRUG ADMINISTRATION [None]
  - HEADACHE [None]
  - WRONG TECHNIQUE IN DRUG USAGE PROCESS [None]
